FAERS Safety Report 12687452 (Version 7)
Quarter: 2019Q2

REPORT INFORMATION
  Report Type: Report from Study
  Country: JP (occurrence: JP)
  Receive Date: 20160826
  Receipt Date: 20190628
  Transmission Date: 20190711
  Serious: Yes (Other)
  Sender: FDA-Public Use
  Company Number: JP-ALEXION PHARMACEUTICALS INC.-A201603189

PATIENT

DRUGS (25)
  1. PREDONINE [Concomitant]
     Active Substance: PREDNISOLONE
     Dosage: 6 DF, UNK
     Route: 065
     Dates: start: 20160816, end: 20160816
  2. PREDONINE [Concomitant]
     Active Substance: PREDNISOLONE
     Dosage: 6 DF, UNK
     Route: 065
     Dates: start: 20161027, end: 20161027
  3. SOLIRIS [Suspect]
     Active Substance: ECULIZUMAB
     Dosage: 900 MG, UNK
     Route: 042
     Dates: start: 20160923, end: 20161011
  4. PREDONINE [Concomitant]
     Active Substance: PREDNISOLONE
     Dosage: 6 DF, UNK
     Route: 065
     Dates: start: 20160825, end: 20160825
  5. RINDERON [Concomitant]
     Indication: PAROXYSMAL NOCTURNAL HAEMOGLOBINURIA
     Dosage: 1 MG, DAILY
     Route: 065
     Dates: start: 20160916, end: 20180117
  6. SOLIRIS [Suspect]
     Active Substance: ECULIZUMAB
     Dosage: 900 MG, Q3W
     Route: 042
     Dates: start: 20160527, end: 20160615
  7. PREDONINE [Concomitant]
     Active Substance: PREDNISOLONE
     Dosage: 6 DF, UNK
     Route: 065
     Dates: start: 20160801, end: 20160801
  8. MIYA-BM [Concomitant]
     Active Substance: CLOSTRIDIUM BUTYRICUM SPORES STRAIN M-55
     Indication: PRODUCT USED FOR UNKNOWN INDICATION
     Dosage: 6 DF, DAILY
     Route: 065
     Dates: start: 20160926
  9. SOLIRIS [Suspect]
     Active Substance: ECULIZUMAB
     Dosage: 900 MG, Q2W
     Route: 042
     Dates: start: 20131004
  10. SOLIRIS [Suspect]
     Active Substance: ECULIZUMAB
     Dosage: 900 MG, Q3W
     Route: 042
     Dates: start: 20160701, end: 20160923
  11. DAIPHEN [Concomitant]
     Active Substance: SULFAMETHOXAZOLE\TRIMETHOPRIM
     Indication: PRODUCT USED FOR UNKNOWN INDICATION
     Dosage: 1 DF, DAILY
     Route: 065
     Dates: start: 20160720, end: 20180719
  12. SOLIRIS [Suspect]
     Active Substance: ECULIZUMAB
     Indication: PAROXYSMAL NOCTURNAL HAEMOGLOBINURIA
     Dosage: 600 MG, QW
     Route: 042
     Dates: start: 20130906, end: 20130927
  13. SOLIRIS [Suspect]
     Active Substance: ECULIZUMAB
     Dosage: 900 MG, UNK
     Route: 042
     Dates: start: 20161122, end: 20161209
  14. PREDONINE [Concomitant]
     Active Substance: PREDNISOLONE
     Indication: PAROXYSMAL NOCTURNAL HAEMOGLOBINURIA
     Dosage: 6 DF, DAILY
     Route: 065
     Dates: start: 20160720, end: 20160720
  15. PREDONEMA [Concomitant]
     Active Substance: PREDNISOLONE SODIUM PHOSPHATE
     Indication: PAROXYSMAL NOCTURNAL HAEMOGLOBINURIA
     Dosage: 20 MG, DAILY
     Route: 065
     Dates: start: 20160711, end: 20170222
  16. SOLIRIS [Suspect]
     Active Substance: ECULIZUMAB
     Dosage: 900 MG, Q3W
     Route: 042
     Dates: start: 20160224, end: 20160427
  17. SOLIRIS [Suspect]
     Active Substance: ECULIZUMAB
     Dosage: 900 MG, Q3W
     Route: 042
     Dates: start: 20161011, end: 20161122
  18. SOLIRIS [Suspect]
     Active Substance: ECULIZUMAB
     Dosage: 900 MG, UNK
     Route: 042
     Dates: start: 20161209, end: 20161227
  19. SOLIRIS [Suspect]
     Active Substance: ECULIZUMAB
     Dosage: 900 MG, Q3W
     Route: 042
     Dates: start: 20170113
  20. SOLIRIS [Suspect]
     Active Substance: ECULIZUMAB
     Dosage: UNK
  21. SOLIRIS [Suspect]
     Active Substance: ECULIZUMAB
     Dosage: 900 MG, Q2W
     Route: 042
     Dates: end: 20160205
  22. SOLIRIS [Suspect]
     Active Substance: ECULIZUMAB
     Dosage: 900 MG, Q2W
     Route: 042
     Dates: start: 20160427, end: 20160527
  23. SOLIRIS [Suspect]
     Active Substance: ECULIZUMAB
     Dosage: 900 MG, Q2W
     Route: 042
     Dates: start: 20160615, end: 20160701
  24. SOLIRIS [Suspect]
     Active Substance: ECULIZUMAB
     Dosage: 900 MG, UNK
     Route: 042
     Dates: start: 20161227, end: 20170113
  25. PREDONINE [Concomitant]
     Active Substance: PREDNISOLONE
     Dosage: 6 DF, UNK
     Route: 065
     Dates: start: 20161109, end: 20161109

REACTIONS (3)
  - Inappropriate schedule of product administration [Not Recovered/Not Resolved]
  - Colitis ulcerative [Recovering/Resolving]
  - Bronchitis [Recovered/Resolved]

NARRATIVE: CASE EVENT DATE: 20151104
